FAERS Safety Report 9871581 (Version 2)
Quarter: 2014Q1

REPORT INFORMATION
  Report Type: Spontaneous
  Country: US (occurrence: US)
  Receive Date: 20140205
  Receipt Date: 20140205
  Transmission Date: 20141002
  Serious: Yes (Other)
  Sender: FDA-Public Use
  Company Number: US-GE HEALTHCARE MEDICAL DIAGNOSTICS-OSCN-PR-1006S-0150

PATIENT
  Sex: Female
  Weight: 70 kg

DRUGS (8)
  1. GADOLINIUM (UNSPECIFIED) [Suspect]
     Indication: ABDOMINAL PAIN
     Dates: start: 20031220, end: 20031220
  2. GADOLINIUM (UNSPECIFIED) [Suspect]
     Indication: PRODUCT USED FOR UNKNOWN INDICATION
     Dates: start: 20040107, end: 20040107
  3. GADOLINIUM (UNSPECIFIED) [Suspect]
     Indication: PRODUCT USED FOR UNKNOWN INDICATION
     Dates: start: 20060530, end: 20060530
  4. GADOLINIUM (UNSPECIFIED) [Suspect]
     Indication: PRODUCT USED FOR UNKNOWN INDICATION
     Dates: start: 20070125, end: 20070125
  5. GADOLINIUM (UNSPECIFIED) [Suspect]
     Indication: PRODUCT USED FOR UNKNOWN INDICATION
     Dates: start: 20070202, end: 20070202
  6. GADOLINIUM (UNSPECIFIED) [Suspect]
     Indication: PRODUCT USED FOR UNKNOWN INDICATION
     Dates: start: 20070628, end: 20070628
  7. GADOLINIUM (UNSPECIFIED) [Suspect]
     Indication: BACK PAIN
     Dates: start: 20081218, end: 20081218
  8. MAGNEVIST [Suspect]
     Indication: PRODUCT USED FOR UNKNOWN INDICATION
     Dates: start: 20050526, end: 20050526

REACTIONS (1)
  - Nephrogenic systemic fibrosis [Not Recovered/Not Resolved]
